FAERS Safety Report 10452739 (Version 1)
Quarter: 2014Q3

REPORT INFORMATION
  Report Type: Spontaneous
  Country: JP (occurrence: JP)
  Receive Date: 20140915
  Receipt Date: 20140915
  Transmission Date: 20150326
  Serious: Yes (Life-Threatening)
  Sender: FDA-Public Use
  Company Number: JP-BAYER-2014-131898

PATIENT
  Age: 77 Year
  Sex: Male
  Weight: 52 kg

DRUGS (9)
  1. PLETAAL [Suspect]
     Active Substance: CILOSTAZOL
     Indication: THROMBOSIS PROPHYLAXIS
     Dosage: 100 MG, BID
     Route: 048
     Dates: start: 20140701, end: 20140731
  2. MAGMITT [Concomitant]
     Active Substance: MAGNESIUM OXIDE
     Dosage: 330 MG, TID
     Route: 048
     Dates: end: 20140806
  3. MUCODYNE [Concomitant]
     Active Substance: CARBOCYSTEINE
     Dosage: 250 MG, TID
     Route: 048
     Dates: end: 20140806
  4. BAYASPIRIN [Suspect]
     Active Substance: ASPIRIN
     Indication: THROMBOSIS PROPHYLAXIS
     Dosage: 100 MG, QD
     Route: 048
     Dates: start: 20140314, end: 20140731
  5. GASTEEL [Concomitant]
     Dosage: 40 MG, TID
     Route: 048
     Dates: end: 20140806
  6. NEXIUM [Suspect]
     Active Substance: ESOMEPRAZOLE MAGNESIUM
     Indication: PROPHYLAXIS AGAINST GASTROINTESTINAL ULCER
     Dosage: 20 MG, QD
     Route: 048
     Dates: start: 20140314, end: 20140731
  7. EDIROL [Concomitant]
     Active Substance: ELDECALCITOL
     Dosage: 0.75 ?G, OM
     Route: 048
     Dates: end: 20140806
  8. ATORVASTATIN [Concomitant]
     Active Substance: ATORVASTATIN
     Dosage: 10 MG, OM
     Route: 048
     Dates: end: 20140806
  9. FOLIAMIN [Concomitant]
     Active Substance: FOLIC ACID
     Dosage: 5 MG, TID
     Route: 048
     Dates: end: 20140806

REACTIONS (1)
  - Pancytopenia [Recovered/Resolved]

NARRATIVE: CASE EVENT DATE: 20140728
